FAERS Safety Report 5289443-4 (Version None)
Quarter: 2007Q2

REPORT INFORMATION
  Report Type: 
  Country: None (occurrence: None)
  Receive Date: 20070406
  Receipt Date: 20070312
  Transmission Date: 20071010
  Serious: Yes (Hospitalization)
  Sender: FDA-Public Use
  Company Number: US-SANOFI-SYNTHELABO-A03200702226

PATIENT
  Sex: Female

DRUGS (4)
  1. XANAX [Concomitant]
     Indication: DRUG USE FOR UNKNOWN INDICATION
     Route: 065
  2. AMBIEN [Suspect]
     Indication: INSOMNIA
     Dosage: 10 TO 20 MGS HS UNK
     Route: 048
     Dates: start: 20040526, end: 20040101
  3. AMBIEN [Suspect]
     Route: 048
     Dates: start: 20060301, end: 20060514
  4. AMBIEN [Suspect]
     Dosage: UNKNOWN UNK
     Route: 048
     Dates: start: 20060508, end: 20060508

REACTIONS (5)
  - AMNESIA [None]
  - CONFUSIONAL STATE [None]
  - INTENTIONAL OVERDOSE [None]
  - LOSS OF CONSCIOUSNESS [None]
  - PNEUMONIA ASPIRATION [None]
